FAERS Safety Report 24120327 (Version 1)
Quarter: 2024Q3

REPORT INFORMATION
  Report Type: Spontaneous
  Country: US (occurrence: None)
  Receive Date: 20240718
  Receipt Date: 20240718
  Transmission Date: 20241016
  Serious: Yes (Life-Threatening, Other)
  Sender: Public
  Company Number: None

PATIENT
  Sex: Male
  Weight: 102.06 kg

DRUGS (1)
  1. OZEMPIC [Suspect]
     Active Substance: SEMAGLUTIDE
     Dates: start: 20240601, end: 20240601

REACTIONS (4)
  - Influenza [None]
  - Vision blurred [None]
  - Salivary hypersecretion [None]
  - Muscle spasms [None]

NARRATIVE: CASE EVENT DATE: 20240601
